FAERS Safety Report 4971690-X (Version None)
Quarter: 2006Q2

REPORT INFORMATION
  Report Type: 
  Country: None (occurrence: None)
  Receive Date: 20060413
  Receipt Date: 20060329
  Transmission Date: 20061013
  Serious: Yes (Hospitalization)
  Sender: FDA-Public Use
  Company Number: HQWYE572829MAR06

PATIENT
  Sex: Male
  Weight: 80 kg

DRUGS (8)
  1. ENBREL [Suspect]
     Indication: PSORIASIS
     Route: 058
     Dates: start: 20060222, end: 20060314
  2. MONOPRIL [Concomitant]
     Dosage: ONE DOSE DAILY
     Route: 048
     Dates: start: 20060210, end: 20060227
  3. NORVASC [Concomitant]
     Route: 048
     Dates: start: 20060210, end: 20060228
  4. NORVASC [Concomitant]
     Route: 048
     Dates: start: 20060228
  5. TAVEGYL [Concomitant]
     Indication: PRURITUS
     Route: 048
     Dates: start: 20060210, end: 20060314
  6. ISONIAZID [Concomitant]
     Indication: ANTIBIOTIC PROPHYLAXIS
     Route: 048
     Dates: start: 20060221, end: 20060314
  7. METHYLPREDNISOLONE [Concomitant]
     Indication: PSORIASIS
     Dates: start: 20060210, end: 20060314
  8. FERROUS GLYCINE SULFATE [Concomitant]

REACTIONS (1)
  - DERMATITIS EXFOLIATIVE [None]
